FAERS Safety Report 4919621-2 (Version None)
Quarter: 2006Q1

REPORT INFORMATION
  Report Type: 
  Country: None (occurrence: None)
  Receive Date: 20060216
  Receipt Date: 20060209
  Transmission Date: 20060701
  Serious: Yes (Disabling)
  Sender: FDA-Public Use
  Company Number: FRWYE377609FEB06

PATIENT
  Age: 64 Year
  Sex: Male

DRUGS (4)
  1. TAZOCILLINE (PIPERACILLIN/TAZOBACTAM, INJECTION) [Suspect]
     Indication: PROCTITIS ULCERATIVE
     Dosage: 4 G 2X PER 1 DAY INTRAVENOUS
     Route: 042
     Dates: start: 20050708, end: 20050723
  2. TAZOCILLINE (PIPERACILLIN/TAZOBACTAM, INJECTION) [Suspect]
     Indication: STAPHYLOCOCCAL BACTERAEMIA
     Dosage: 4 G 2X PER 1 DAY INTRAVENOUS
     Route: 042
     Dates: start: 20050708, end: 20050723
  3. CIFLOX (CIPROFLOXACIN, , 0) [Suspect]
     Indication: PROCTITIS ULCERATIVE
     Dosage: 500 MG 1X PER 1 DAY ORAL
     Route: 048
     Dates: start: 20050708, end: 20050723
  4. CIFLOX (CIPROFLOXACIN, , 0) [Suspect]
     Indication: STAPHYLOCOCCAL BACTERAEMIA
     Dosage: 500 MG 1X PER 1 DAY ORAL
     Route: 048
     Dates: start: 20050708, end: 20050723

REACTIONS (3)
  - CHOLECYSTECTOMY [None]
  - CLOSTRIDIUM COLITIS [None]
  - SEPTIC SHOCK [None]
